FAERS Safety Report 4519604-0 (Version None)
Quarter: 2004Q4

REPORT INFORMATION
  Report Type: 
  Country: None (occurrence: None)
  Receive Date: 20041206
  Receipt Date: 20041130
  Transmission Date: 20050328
  Serious: Yes (Hospitalization)
  Sender: FDA-Public Use
  Company Number: US-MERCK-0412USA00043

PATIENT
  Age: 84 Year
  Sex: Male

DRUGS (2)
  1. VIOXX [Suspect]
     Indication: ARTHRITIS
     Route: 048
  2. ATENOLOL [Concomitant]
     Route: 065

REACTIONS (3)
  - DIZZINESS [None]
  - FALL [None]
  - MALAISE [None]
